FAERS Safety Report 17622596 (Version 2)
Quarter: 2020Q2

REPORT INFORMATION
  Report Type: Spontaneous
  Country: TR (occurrence: TR)
  Receive Date: 20200403
  Receipt Date: 20200414
  Transmission Date: 20200713
  Serious: Yes (Other)
  Sender: FDA-Public Use
  Company Number: TR-PFIZER INC-2020137361

PATIENT
  Age: 39 Year
  Sex: Female

DRUGS (2)
  1. MATOFIN [Concomitant]
     Indication: DIABETES MELLITUS
     Dosage: 500 MG, 2X/DAY
     Dates: start: 202003
  2. DOSTINEX [Suspect]
     Active Substance: CABERGOLINE
     Indication: PITUITARY ENLARGEMENT
     Dosage: 0.5 MG, 2X/WEEK (ON MONDAY AND THURSDAY)
     Dates: start: 202003

REACTIONS (7)
  - Feeling abnormal [Recovered/Resolved]
  - Chest discomfort [Recovered/Resolved]
  - Nausea [Unknown]
  - Dyspnoea [Recovered/Resolved]
  - Headache [Unknown]
  - Blood cholesterol increased [Unknown]
  - Angina pectoris [Recovered/Resolved]

NARRATIVE: CASE EVENT DATE: 202003
